FAERS Safety Report 9258897 (Version 1)
Quarter: 2013Q2

REPORT INFORMATION
  Report Type: Spontaneous
  Country: BR (occurrence: BR)
  Receive Date: 20130426
  Receipt Date: 20130426
  Transmission Date: 20140414
  Serious: Yes (Death, Hospitalization)
  Sender: FDA-Public Use
  Company Number: BR-GLAXOSMITHKLINE-A1021484A

PATIENT
  Sex: Male
  Weight: 75 kg

DRUGS (2)
  1. VOTRIENT [Suspect]
     Indication: LUNG NEOPLASM MALIGNANT
     Dosage: 400MG PER DAY
     Route: 048
     Dates: start: 20130112, end: 20130113
  2. TYLENOL [Concomitant]

REACTIONS (1)
  - Neoplasm malignant [Fatal]
